FAERS Safety Report 10781123 (Version 1)
Quarter: 2015Q1

REPORT INFORMATION
  Report Type: Spontaneous
  Country: US (occurrence: US)
  Receive Date: 20150210
  Receipt Date: 20150210
  Transmission Date: 20150721
  Serious: No
  Sender: FDA-Public Use
  Company Number: US-GLAXOSMITHKLINE-A1060962A

PATIENT

DRUGS (2)
  1. WALGREEN NICOTINE [Suspect]
     Active Substance: NICOTINE
     Indication: EX-TOBACCO USER
     Route: 062
     Dates: end: 20140212
  2. WALGREEN NICOTINE [Suspect]
     Active Substance: NICOTINE
     Route: 062

REACTIONS (5)
  - Urticaria [Unknown]
  - Application site urticaria [Not Recovered/Not Resolved]
  - Drug administration error [Unknown]
  - Application site pruritus [Not Recovered/Not Resolved]
  - Hypersensitivity [Not Recovered/Not Resolved]

NARRATIVE: CASE EVENT DATE: 20140212
